FAERS Safety Report 6802743-9 (Version None)
Quarter: 2010Q2

REPORT INFORMATION
  Report Type: 
  Country: None (occurrence: None)
  Receive Date: 20100628
  Receipt Date: 20100621
  Transmission Date: 20101027
  Serious: Yes (Hospitalization)
  Sender: FDA-Public Use
  Company Number: BE-ELI_LILLY_AND_COMPANY-BE201006005458

PATIENT
  Sex: Male
  Weight: 54.7 kg

DRUGS (17)
  1. PEMETREXED [Suspect]
     Indication: HEAD AND NECK CANCER
     Dosage: 500 MG/M2, DAY 1 EVERY 21 DAYS
     Route: 042
     Dates: start: 20100506
  2. CETUXIMAB [Suspect]
     Indication: HEAD AND NECK CANCER
     Dosage: 400 MG/M2, LOADING DOSE ON DAY1, CYCLE 1
     Route: 042
     Dates: start: 20100506, end: 20100506
  3. CETUXIMAB [Suspect]
     Dosage: 250 MG/M2, WEEKLY (1/W)
     Route: 042
  4. CISPLATIN [Suspect]
     Indication: HEAD AND NECK CANCER
     Dosage: 75 MG/M2, DAY 1 EVERY 21 DAYS
     Route: 042
     Dates: start: 20100506
  5. FOLIC ACID [Concomitant]
     Indication: PROPHYLAXIS
     Dates: start: 20100426
  6. VITAMIN B-12 [Concomitant]
     Indication: PROPHYLAXIS
     Dates: start: 20100427
  7. DEXAMETHASONE [Concomitant]
     Indication: PROPHYLAXIS
     Dates: start: 20100616, end: 20100618
  8. BLOOD TRANSFUSION, AUXILIARY PRODUCTS [Concomitant]
     Indication: ANAEMIA
     Dates: start: 20100618, end: 20100618
  9. ALPRAZOLAM [Concomitant]
     Indication: ANXIETY
     Dates: start: 20100512
  10. LASIX [Concomitant]
     Indication: OEDEMA
     Dates: start: 20100528
  11. FRAXIPARINE [Concomitant]
     Indication: PROPHYLAXIS
     Dates: start: 20100426
  12. ZANTAC [Concomitant]
     Indication: PROPHYLAXIS
     Dates: start: 20100419
  13. LEXOTAN [Concomitant]
     Indication: PROPHYLAXIS
  14. ORAL BALANCE [Concomitant]
     Indication: PROPHYLAXIS
     Dates: start: 20100429
  15. EMCONCOR [Concomitant]
     Indication: HYPERTENSION
     Dates: start: 20100425
  16. EMEND [Concomitant]
     Indication: PROPHYLAXIS
     Dates: start: 20100617, end: 20100619
  17. DAFALGAN [Concomitant]
     Indication: PROPHYLAXIS
     Dates: start: 20100414

REACTIONS (1)
  - SUBCUTANEOUS ABSCESS [None]
